FAERS Safety Report 17238755 (Version 3)
Quarter: 2021Q3

REPORT INFORMATION
  Report Type: Spontaneous
  Country: HU (occurrence: HU)
  Receive Date: 20200106
  Receipt Date: 20210921
  Transmission Date: 20211014
  Serious: Yes (Other)
  Sender: FDA-Public Use
  Company Number: HU-MYLANLABS-2020M1000149

PATIENT
  Sex: Male

DRUGS (7)
  1. GLIVEC [Suspect]
     Active Substance: IMATINIB MESYLATE
     Indication: PHILADELPHIA POSITIVE CHRONIC MYELOID LEUKAEMIA
  2. GLIVEC [Suspect]
     Active Substance: IMATINIB MESYLATE
     Indication: CHRONIC MYELOID LEUKAEMIA
     Dosage: 400 MG, QD (1X/DAILY)
     Route: 065
     Dates: start: 200804, end: 201009
  3. NILOTINIB [Suspect]
     Active Substance: NILOTINIB
     Indication: CHRONIC MYELOID LEUKAEMIA
     Dosage: 400 MG, QD (2X/DAILY)
     Route: 065
     Dates: start: 201111
  4. NILOTINIB [Suspect]
     Active Substance: NILOTINIB
     Dosage: 300 MG, UNK (2X)
     Route: 065
  5. TASIGNA [Suspect]
     Active Substance: NILOTINIB
     Indication: CHRONIC MYELOID LEUKAEMIA
     Dosage: 400 MG, QD (2X/DAILY)
     Route: 065
     Dates: start: 201011
  6. TASIGNA [Suspect]
     Active Substance: NILOTINIB
     Dosage: 300 MG, BID (2 X 300 MG)
     Route: 065
     Dates: start: 201810
  7. ALLOPURINOL. [Suspect]
     Active Substance: ALLOPURINOL
     Indication: PHILADELPHIA POSITIVE CHRONIC MYELOID LEUKAEMIA
     Dosage: UNK
     Route: 065

REACTIONS (19)
  - Red cell distribution width increased [Unknown]
  - Malaise [Unknown]
  - Eosinophil count decreased [Unknown]
  - Neutrophil count increased [Unknown]
  - Hyperhidrosis [Unknown]
  - Drug ineffective [Unknown]
  - Leukocytosis [Not Recovered/Not Resolved]
  - Haemoglobin decreased [Unknown]
  - Lymphocyte count abnormal [Unknown]
  - Monocyte count increased [Unknown]
  - Basophil count increased [Unknown]
  - Product use in unapproved indication [Unknown]
  - Splenomegaly [Unknown]
  - Leukostasis syndrome [Unknown]
  - Haematocrit decreased [Unknown]
  - Cytogenetic analysis abnormal [Recovering/Resolving]
  - Fatigue [Unknown]
  - Drug resistance [Unknown]
  - Lymphocyte count decreased [Unknown]

NARRATIVE: CASE EVENT DATE: 200809
